FAERS Safety Report 21350647 (Version 1)
Quarter: 2022Q3

REPORT INFORMATION
  Report Type: Spontaneous
  Country: US (occurrence: None)
  Receive Date: 20220919
  Receipt Date: 20220919
  Transmission Date: 20221027
  Serious: Yes (Other)
  Sender: FDA-Public Use
  Company Number: None

PATIENT
  Age: 53 Year
  Sex: Female
  Weight: 76.5 kg

DRUGS (12)
  1. QULIPTA [Suspect]
     Active Substance: ATOGEPANT
     Indication: Hemiplegic migraine
     Dosage: OTHER QUANTITY : 1 TABLET(S);?FREQUENCY : DAILY;?
     Route: 048
  2. TOPAMAX [Concomitant]
     Active Substance: TOPIRAMATE
  3. MIRAPEX [Concomitant]
     Active Substance: PRAMIPEXOLE DIHYDROCHLORIDE
  4. ZOLOFT [Concomitant]
     Active Substance: SERTRALINE HYDROCHLORIDE
  5. LYRICA [Concomitant]
     Active Substance: PREGABALIN
  6. ESTRADIOL [Concomitant]
     Active Substance: ESTRADIOL
  7. ELIQUIS [Concomitant]
     Active Substance: APIXABAN
  8. VALTREX [Concomitant]
     Active Substance: VALACYCLOVIR HYDROCHLORIDE
  9. VITAMIN B12 [Concomitant]
     Active Substance: CYANOCOBALAMIN
  10. VITAMIN D3 [Concomitant]
     Active Substance: CHOLECALCIFEROL
  11. FOLIC ACID [Concomitant]
     Active Substance: FOLIC ACID
  12. BIOTIN [Concomitant]
     Active Substance: BIOTIN

REACTIONS (7)
  - Nausea [None]
  - Dizziness [None]
  - Decreased appetite [None]
  - Dehydration [None]
  - Asthenia [None]
  - Diarrhoea [None]
  - Micturition frequency decreased [None]

NARRATIVE: CASE EVENT DATE: 20220615
